FAERS Safety Report 12876131 (Version 1)
Quarter: 2016Q4

REPORT INFORMATION
  Report Type: Spontaneous
  Country: US (occurrence: US)
  Receive Date: 20161021
  Receipt Date: 20161021
  Transmission Date: 20170207
  Serious: Yes (Life-Threatening, Disabling, Other)
  Sender: FDA-Public Use
  Company Number: None

PATIENT
  Age: 34 Year
  Sex: Male
  Weight: 76.5 kg

DRUGS (11)
  1. CELEBREX [Concomitant]
     Active Substance: CELECOXIB
  2. DURAGESIC [Suspect]
     Active Substance: FENTANYL
     Indication: UNEVALUABLE EVENT
     Dosage: TRANSDERMAL EVERY 72 HRS
     Route: 062
  3. NORCO [Concomitant]
     Active Substance: ACETAMINOPHEN\HYDROCODONE BITARTRATE
  4. KLONOPIN [Concomitant]
     Active Substance: CLONAZEPAM
  5. IMITREX [Concomitant]
     Active Substance: SUMATRIPTAN SUCCINATE
  6. DURAGESIC [Suspect]
     Active Substance: FENTANYL
     Indication: PAIN
     Dosage: TRANSDERMAL EVERY 72 HRS
     Route: 062
  7. PROTONIX [Concomitant]
     Active Substance: PANTOPRAZOLE SODIUM
  8. ALBUTEROL. [Concomitant]
     Active Substance: ALBUTEROL
  9. ZOFRAN [Concomitant]
     Active Substance: ONDANSETRON HYDROCHLORIDE
  10. ADDERALL [Concomitant]
     Active Substance: AMPHETAMINE ASPARTATE\AMPHETAMINE SULFATE\DEXTROAMPHETAMINE SACCHARATE\DEXTROAMPHETAMINE SULFATE
  11. DERMA SMOOTH TOPICAL OIL [Concomitant]

REACTIONS (4)
  - Product substitution issue [None]
  - Product packaging quantity issue [None]
  - Application site burn [None]
  - Hypersensitivity [None]

NARRATIVE: CASE EVENT DATE: 20151001
